FAERS Safety Report 16032212 (Version 1)
Quarter: 2019Q1

REPORT INFORMATION
  Report Type: Spontaneous
  Country: US (occurrence: US)
  Receive Date: 20190304
  Receipt Date: 20190304
  Transmission Date: 20190418
  Serious: Yes (Other)
  Sender: FDA-Public Use
  Company Number: US-PFIZER INC-2019080317

PATIENT
  Sex: Female

DRUGS (2)
  1. LYRICA [Suspect]
     Active Substance: PREGABALIN
     Dosage: UNK, 2X/DAY (SHE TOOK HERSELF DOWN TO TWICE A DAY)
  2. LYRICA [Suspect]
     Active Substance: PREGABALIN
     Dosage: 50 MG, 3X/DAY

REACTIONS (12)
  - Insomnia [Recovering/Resolving]
  - Nausea [Not Recovered/Not Resolved]
  - Dizziness [Unknown]
  - Anxiety [Unknown]
  - Fear [Unknown]
  - Tachyphrenia [Unknown]
  - Suicidal ideation [Recovered/Resolved]
  - Intentional product use issue [Unknown]
  - Panic attack [Unknown]
  - Depression [Unknown]
  - Agitation [Unknown]
  - Withdrawal syndrome [Unknown]
